FAERS Safety Report 4441749-4 (Version None)
Quarter: 2004Q3

REPORT INFORMATION
  Report Type: 
  Country: None (occurrence: None)
  Receive Date: 20040907
  Receipt Date: 20040826
  Transmission Date: 20050211
  Serious: Yes (Hospitalization)
  Sender: FDA-Public Use
  Company Number: US-JNJFOC-20040703051

PATIENT
  Sex: Female
  Weight: 81.19 kg

DRUGS (13)
  1. REMICADE [Suspect]
     Route: 042
  2. REMICADE [Suspect]
     Indication: RHEUMATOID ARTHRITIS
     Route: 042
  3. ACTIVELLE [Suspect]
     Route: 049
  4. ACTIVELLE [Suspect]
     Indication: MIGRAINE
     Route: 049
  5. METHOTREXATE [Concomitant]
  6. METHOTREXATE [Concomitant]
  7. VIOXX [Concomitant]
  8. FOLIC ACID [Concomitant]
  9. PREDNISONE [Concomitant]
     Route: 049
  10. PREDNISONE [Concomitant]
     Route: 049
  11. PREDNISONE [Concomitant]
     Route: 049
  12. BEXTRA [Concomitant]
  13. ATENOLOL [Concomitant]

REACTIONS (23)
  - ANTINUCLEAR ANTIBODY POSITIVE [None]
  - ASTHENIA [None]
  - BACTERIA URINE [None]
  - BLOOD GLUCOSE INCREASED [None]
  - BLOOD SODIUM DECREASED [None]
  - BLOOD URINE [None]
  - CHILLS [None]
  - CREATINE PHOSPHOKINASE DECREASED [None]
  - DISCOMFORT [None]
  - MUSCLE SPASMS [None]
  - MYALGIA [None]
  - NASAL CONGESTION [None]
  - PANNICULITIS [None]
  - PYREXIA [None]
  - RASH ERYTHEMATOUS [None]
  - RED BLOOD CELL SEDIMENTATION RATE INCREASED [None]
  - RED BLOOD CELLS URINE [None]
  - RHINORRHOEA [None]
  - SKIN DISCOLOURATION [None]
  - TENDERNESS [None]
  - TREMOR [None]
  - URTICARIA [None]
  - WHITE BLOOD CELLS URINE POSITIVE [None]
